FAERS Safety Report 7937350-8 (Version None)
Quarter: 2011Q4

REPORT INFORMATION
  Report Type: 
  Country: None (occurrence: None)
  Receive Date: 20111123
  Receipt Date: 20111117
  Transmission Date: 20120403
  Serious: Yes (Hospitalization, Other)
  Sender: FDA-Public Use
  Company Number: MX-PFIZER INC-2011274752

PATIENT
  Age: 42 Year
  Sex: Female
  Weight: 68 kg

DRUGS (6)
  1. ONDANSETRON [Concomitant]
     Indication: NAUSEA
     Dosage: 8 MG, UNK
     Route: 042
     Dates: start: 20111103, end: 20111104
  2. TYGACIL [Suspect]
     Indication: PROPHYLAXIS
     Dosage: 50 MG, 1X/DAY
     Route: 042
     Dates: start: 20111103, end: 20111105
  3. ESOMEPRAZOLE [Concomitant]
     Indication: PROPHYLAXIS
     Dosage: 40 MG, UNK
     Route: 042
     Dates: start: 20111103, end: 20111116
  4. ENOXAPARIN SODIUM [Concomitant]
     Indication: PROPHYLAXIS
     Dosage: 40 MG, UNK
     Route: 058
     Dates: start: 20111103, end: 20111116
  5. KETOROLACO [Concomitant]
     Indication: PAIN
     Dosage: 60 MG, UNK
     Route: 042
     Dates: start: 20111103, end: 20111104
  6. METAMIZOLE [Concomitant]
     Indication: PAIN
     Dosage: 2 G, UNK
     Route: 042
     Dates: start: 20111103, end: 20111103

REACTIONS (9)
  - RESPIRATORY FAILURE [None]
  - TACHYCARDIA [None]
  - MULTI-ORGAN FAILURE [None]
  - HYPOTENSION [None]
  - METABOLIC ACIDOSIS [None]
  - BRADYCARDIA [None]
  - PULMONARY OEDEMA [None]
  - DYSPNOEA [None]
  - ANURIA [None]
